FAERS Safety Report 6307755-X (Version None)
Quarter: 2009Q3

REPORT INFORMATION
  Report Type: 
  Country: None (occurrence: None)
  Receive Date: 20090813
  Receipt Date: 20090302
  Transmission Date: 20100115
  Serious: Yes (Hospitalization, Other)
  Sender: FDA-Public Use
  Company Number: US-ASTRAZENECA-2007UW15766

PATIENT
  Age: 18705 Day
  Sex: Male
  Weight: 91.5 kg

DRUGS (28)
  1. SEROQUEL [Suspect]
     Indication: SLEEP DISORDER
     Route: 048
     Dates: start: 20000306
  2. SEROQUEL [Suspect]
     Indication: PSYCHOTIC DISORDER
     Route: 048
     Dates: start: 20000306
  3. SEROQUEL [Suspect]
     Dosage: 200 - 800 MG DAILY
     Route: 048
     Dates: start: 20010202
  4. SEROQUEL [Suspect]
     Dosage: 200 - 800 MG DAILY
     Route: 048
     Dates: start: 20010202
  5. ZYPREXA [Concomitant]
     Dosage: 10 TO 20 MG
     Dates: start: 20010202, end: 20010301
  6. HALDOL [Concomitant]
     Dates: start: 20050101
  7. EFFEXOR XR [Concomitant]
     Indication: DEPRESSION
     Dosage: 300 - 375 MG DAILY
     Route: 048
     Dates: start: 20010202
  8. REMERON [Concomitant]
     Indication: DEPRESSION
     Dosage: 30 -60 MG DAILY
     Route: 048
     Dates: start: 20010202
  9. LIPITOR [Concomitant]
     Route: 048
     Dates: start: 20071011
  10. MECLIZINE [Concomitant]
     Indication: VERTIGO
     Dosage: 25 MG TWO TIMES A DAY, 75 - 100 MG DAILY AS REQUIRED
     Route: 048
     Dates: start: 20030716
  11. MECLIZINE [Concomitant]
     Indication: DIZZINESS
     Dosage: 25 MG TWO TIMES A DAY, 75 - 100 MG DAILY AS REQUIRED
     Route: 048
     Dates: start: 20030716
  12. MOBIC [Concomitant]
     Route: 048
     Dates: start: 20070322
  13. PERCOCET [Concomitant]
     Indication: PAIN
     Dosage: 5/325 MG - 7.5/325 MG, EVERY 4-6 HOURS, AS REQUIRED
     Route: 048
     Dates: start: 20041215
  14. PREVACID [Concomitant]
     Indication: DYSPHAGIA
     Dosage: 10 MG TO 60 MG DAILY
     Route: 048
     Dates: start: 20010202
  15. NABUMETONE [Concomitant]
     Dates: start: 19971211
  16. HALOPERIDOL [Concomitant]
     Dosage: 10 MG TO 20 MG DAILY
     Route: 048
     Dates: start: 20071216
  17. LORAZEPAM [Concomitant]
     Dates: start: 19971022
  18. ACTOS [Concomitant]
     Dosage: 15 - 45 MG DAILY
     Route: 048
     Dates: start: 20030716
  19. FOSINOP/HCTZ [Concomitant]
     Dosage: 10/12.5 MG DAILY
     Route: 048
     Dates: start: 19970917
  20. PROTONIX [Concomitant]
     Route: 048
     Dates: start: 20071011
  21. CYCLOBENZAPRINE HCL [Concomitant]
     Dates: start: 19970917
  22. COGENTIN [Concomitant]
     Route: 048
     Dates: start: 20071216
  23. ASPIRIN [Concomitant]
     Route: 048
     Dates: start: 19960317
  24. ALLEGRA [Concomitant]
     Dates: start: 20061220
  25. ACCUPRIL [Concomitant]
     Dates: start: 20030716
  26. DIOVAN [Concomitant]
     Route: 048
     Dates: start: 20030716
  27. KLONOPIN [Concomitant]
     Dosage: 1 MG TO 3 MG DAILY
     Route: 048
     Dates: start: 20071011
  28. NITROGLYCERIN [Concomitant]
     Dosage: 0.2 MG PER HOUR, 12 ON AND 12 OFF
     Dates: start: 19940405

REACTIONS (9)
  - BACK PAIN [None]
  - BLOOD CHOLESTEROL INCREASED [None]
  - DIABETES MELLITUS [None]
  - HYPERTENSION [None]
  - HYPOGLYCAEMIA [None]
  - MENTAL DISORDER [None]
  - NEUROPATHY PERIPHERAL [None]
  - TYPE 1 DIABETES MELLITUS [None]
  - TYPE 2 DIABETES MELLITUS [None]
